FAERS Safety Report 7550033-1 (Version None)
Quarter: 2011Q2

REPORT INFORMATION
  Report Type: 
  Country: None (occurrence: None)
  Receive Date: 20110615
  Receipt Date: 20110601
  Transmission Date: 20111010
  Serious: Yes (Hospitalization)
  Sender: FDA-Public Use
  Company Number: FR-ELI_LILLY_AND_COMPANY-FR201106001305

PATIENT
  Sex: Female

DRUGS (20)
  1. TRIMETAZIDINE [Concomitant]
     Dosage: 35 MG, UNK
  2. TROPATEPINE [Concomitant]
     Dosage: 10 MG, UNK
  3. MODOPAR [Concomitant]
     Indication: TREMOR
  4. TROSPIUM CHLORIDE [Concomitant]
     Dosage: 20 MG, UNK
  5. ACETYLLEUCINE [Concomitant]
     Dosage: 500 MG, UNK
  6. ZYPREXA [Suspect]
     Dosage: 15 MG, QD
  7. ZYPREXA [Suspect]
     Dosage: UNK, UNKNOWN
  8. LITHIUM CARBONATE [Concomitant]
     Dosage: 375 MG, QD
  9. LEVOTHYROXINE SODIUM [Concomitant]
     Dosage: UNK, UNKNOWN
  10. BROMAZEPAM [Concomitant]
     Dosage: 6 MG, UNK
  11. AMLODIPINE BESYLATE AND VALSARTAN [Concomitant]
     Indication: HYPERTENSION
  12. VALPROATE SODIUM [Concomitant]
     Dosage: 500 MG, UNK
  13. ACETAMINOPHEN [Concomitant]
     Dosage: 1 G, UNK
  14. LITHIUM CARBONATE [Concomitant]
     Dosage: UNK UNK, UNKNOWN
  15. MONTELUKAST SODIUM [Concomitant]
     Dosage: 10 MG, UNK
  16. BUDESONIDE W/FORMOTEROL FUMARATE [Concomitant]
  17. LITHIUM CARBONATE [Concomitant]
     Dosage: 400 MG, UNKNOWN
  18. LITHIUM CARBONATE [Concomitant]
     Dosage: 400 MG, BID
  19. LEVOTHYROXINE SODIUM [Concomitant]
     Dosage: 175 UG, UNK
  20. ALBUTEROL [Concomitant]

REACTIONS (4)
  - HOSPITALISATION [None]
  - DEPRESSION [None]
  - TREMOR [None]
  - DIZZINESS [None]
